FAERS Safety Report 14108098 (Version 6)
Quarter: 2018Q3

REPORT INFORMATION
  Report Type: Spontaneous
  Country: DE (occurrence: DE)
  Receive Date: 20171019
  Receipt Date: 20180824
  Transmission Date: 20181010
  Serious: Yes (Hospitalization)
  Sender: FDA-Public Use
  Company Number: DE-PFIZER INC-2017445011

PATIENT
  Age: 54 Year
  Sex: Female

DRUGS (8)
  1. MELPERONE [Concomitant]
     Active Substance: MELPERONE
     Indication: MAJOR DEPRESSION
     Dosage: 50 TO 100 MG
  2. BUPROPION. [Suspect]
     Active Substance: BUPROPION
     Indication: MAJOR DEPRESSION
     Dosage: 150 TO 300 MG
  3. RAMIPRIL. [Concomitant]
     Active Substance: RAMIPRIL
     Indication: HYPERTENSION
     Dosage: 5 MG, UNK
  4. VENLAFAXINE [Concomitant]
     Active Substance: VENLAFAXINE HYDROCHLORIDE
     Indication: MAJOR DEPRESSION
     Dosage: UNK
     Dates: start: 2006
  5. SERTRALINE HCL [Suspect]
     Active Substance: SERTRALINE HYDROCHLORIDE
     Indication: MAJOR DEPRESSION
     Dosage: 150 MG, UNK
  6. DOXEPIN HCL [Suspect]
     Active Substance: DOXEPIN HYDROCHLORIDE
     Indication: MAJOR DEPRESSION
     Dosage: ONCE OR TWICE A WEEK
     Dates: start: 2015, end: 2016
  7. LITHIUM. [Concomitant]
     Active Substance: LITHIUM
     Indication: MAJOR DEPRESSION
     Dosage: UNK
     Dates: start: 2006
  8. DOXEPIN HCL [Suspect]
     Active Substance: DOXEPIN HYDROCHLORIDE
     Dosage: UNK
     Dates: start: 2006

REACTIONS (2)
  - Sleep-related eating disorder [Recovering/Resolving]
  - Condition aggravated [Recovering/Resolving]
